FAERS Safety Report 12948283 (Version 1)
Quarter: 2016Q4

REPORT INFORMATION
  Report Type: Spontaneous
  Country: US (occurrence: US)
  Receive Date: 20161117
  Receipt Date: 20161117
  Transmission Date: 20170207
  Serious: Yes (Other)
  Sender: FDA-Public Use
  Company Number: US-AMGEN-USASP2016159254

PATIENT
  Age: 84 Year
  Sex: Female

DRUGS (2)
  1. DILANTIN [Concomitant]
     Active Substance: PHENYTOIN
     Dosage: UNK
     Dates: start: 1976
  2. ENBREL [Suspect]
     Active Substance: ETANERCEPT
     Indication: RHEUMATOID ARTHRITIS
     Dosage: 25 MG, 2 TIMES/WK
     Route: 065
     Dates: start: 2006

REACTIONS (5)
  - General physical health deterioration [Unknown]
  - Fall [Unknown]
  - Speech disorder [Unknown]
  - Seizure [Unknown]
  - Incorrect product storage [Unknown]
